FAERS Safety Report 4774762-8 (Version None)
Quarter: 2005Q3

REPORT INFORMATION
  Report Type: 
  Country: None (occurrence: None)
  Receive Date: 20050921
  Receipt Date: 20050622
  Transmission Date: 20060218
  Serious: Yes (Hospitalization)
  Sender: FDA-Public Use
  Company Number: FR-ROCHE-408545

PATIENT
  Age: 47 Year
  Sex: Female
  Weight: 90 kg

DRUGS (6)
  1. PEGASYS [Suspect]
     Indication: HEPATITIS C
     Route: 058
     Dates: start: 20050110, end: 20050602
  2. REBETOL [Suspect]
     Indication: HEPATITIS C
     Route: 048
     Dates: start: 20050110, end: 20050602
  3. SUSTIVA [Suspect]
     Route: 048
     Dates: start: 20040101
  4. REYATAZ [Concomitant]
     Route: 048
     Dates: start: 20040101
  5. NORVIR [Concomitant]
     Route: 048
     Dates: start: 20040101
  6. DEROXAT [Concomitant]
     Route: 048
     Dates: start: 20050202, end: 20050407

REACTIONS (6)
  - ANTINUCLEAR ANTIBODY POSITIVE [None]
  - DEPRESSION [None]
  - HAEMORRHAGE [None]
  - HEPATITIS [None]
  - PLATELET COUNT ABNORMAL [None]
  - WEIGHT DECREASED [None]
